FAERS Safety Report 16856006 (Version 3)
Quarter: 2020Q2

REPORT INFORMATION
  Report Type: Spontaneous
  Country: DE (occurrence: DE)
  Receive Date: 20190926
  Receipt Date: 20200519
  Transmission Date: 20200713
  Serious: Yes (Other)
  Sender: FDA-Public Use
  Company Number: DE-MYLANLABS-2019M1089013

PATIENT
  Age: 75 Year
  Sex: Male
  Weight: 93 kg

DRUGS (2)
  1. CLOPIDOGREL [Suspect]
     Active Substance: CLOPIDOGREL BISULFATE
     Indication: PERCUTANEOUS CORONARY INTERVENTION
     Dosage: 75 MILLIGRAM, QD
     Route: 065
  2. ELIQUIS [Suspect]
     Active Substance: APIXABAN
     Indication: CEREBROVASCULAR ACCIDENT PROPHYLAXIS
     Dosage: 2.5 MILLIGRAM, BID
     Route: 048
     Dates: start: 201702, end: 20190424

REACTIONS (5)
  - Contraindicated product administered [Unknown]
  - Off label use [Unknown]
  - Cerebral haemorrhage [Recovering/Resolving]
  - Intentional product use issue [Unknown]
  - Prescribed underdose [Unknown]
